FAERS Safety Report 6081027-3 (Version None)
Quarter: 2009Q1

REPORT INFORMATION
  Report Type: 
  Country: None (occurrence: None)
  Receive Date: 20090217
  Receipt Date: 20090209
  Transmission Date: 20090719
  Serious: Yes (Other)
  Sender: FDA-Public Use
  Company Number: PHBS2009NL00769

PATIENT

DRUGS (1)
  1. METOPROLOL TARTRATE [Suspect]
     Route: 064

REACTIONS (3)
  - ATRIOVENTRICULAR BLOCK FIRST DEGREE [None]
  - BRADYCARDIA [None]
  - ELECTROCARDIOGRAM QT PROLONGED [None]
